FAERS Safety Report 6269981-8 (Version None)
Quarter: 2009Q3

REPORT INFORMATION
  Report Type: 
  Country: None (occurrence: None)
  Receive Date: 20090716
  Receipt Date: 20070409
  Transmission Date: 20100115
  Serious: Yes (Other)
  Sender: FDA-Public Use
  Company Number: US-ASTRAZENECA-2007UW04038

PATIENT
  Age: 22 Year
  Sex: Female
  Weight: 89.8 kg

DRUGS (22)
  1. SEROQUEL [Suspect]
     Indication: ANXIETY
     Dosage: 25 MG - 100 MG
     Route: 048
     Dates: start: 20000615
  2. SEROQUEL [Suspect]
     Indication: BIPOLAR DISORDER
     Dosage: 25 MG - 100 MG
     Route: 048
     Dates: start: 20000615
  3. SOLIAN [Concomitant]
     Dates: start: 20000101, end: 20050101
  4. STELAZINE [Concomitant]
     Dates: start: 19700101, end: 19770101
  5. THORAZINE [Concomitant]
     Dates: start: 19700101, end: 19780101
  6. SYNTHROID [Concomitant]
  7. NOVOLOG [Concomitant]
  8. DEPAKOTE [Concomitant]
  9. HUMULIN 70/30 [Concomitant]
  10. LITHIUM CARBONATE [Concomitant]
  11. XANAX [Concomitant]
  12. KEFLEX [Concomitant]
  13. LANTUS [Concomitant]
  14. VICODIN [Concomitant]
  15. ZITHROMAX [Concomitant]
  16. PROMETHEGAN [Concomitant]
  17. CIPRO [Concomitant]
  18. ENDEP [Concomitant]
  19. GLUCOTROL [Concomitant]
  20. VIBRAMYCIN [Concomitant]
  21. NEURONTIN [Concomitant]
  22. ZOVIRAX [Concomitant]

REACTIONS (4)
  - DIABETES MELLITUS [None]
  - KETOACIDOSIS [None]
  - NEUROLEPTIC MALIGNANT SYNDROME [None]
  - NEUROPATHY PERIPHERAL [None]
